FAERS Safety Report 8004182-4 (Version None)
Quarter: 2011Q4

REPORT INFORMATION
  Report Type: 
  Country: None (occurrence: None)
  Receive Date: 20111223
  Receipt Date: 20111215
  Transmission Date: 20120403
  Serious: Yes (Hospitalization, Other)
  Sender: FDA-Public Use
  Company Number: 2004BI000975

PATIENT
  Age: 43 Year
  Sex: Male
  Weight: 68 kg

DRUGS (3)
  1. AVONEX [Suspect]
     Route: 030
     Dates: start: 19970101, end: 20041001
  2. DILANTIN [Concomitant]
     Indication: CONVULSION
     Dates: start: 19950101
  3. AVONEX [Suspect]
     Indication: MULTIPLE SCLEROSIS
     Route: 030
     Dates: start: 20041001

REACTIONS (5)
  - WEIGHT DECREASED [None]
  - MULTIPLE SCLEROSIS [None]
  - DEPRESSION [None]
  - MULTIPLE MYELOMA [None]
  - COLON CANCER [None]
